FAERS Safety Report 16094718 (Version 1)
Quarter: 2019Q1

REPORT INFORMATION
  Report Type: Report from Study
  Country: CA (occurrence: CA)
  Receive Date: 20190320
  Receipt Date: 20190320
  Transmission Date: 20190418
  Serious: Yes (Other)
  Sender: FDA-Public Use
  Company Number: CA-KADMON PHARMACEUTICALS, LLC-KAD201903-000150

PATIENT
  Age: 56 Year
  Sex: Male

DRUGS (2)
  1. RIBAVIRIN. [Suspect]
     Active Substance: RIBAVIRIN
     Indication: HEPATITIS C
  2. INTERFERON [Suspect]
     Active Substance: INTERFERON
     Indication: HEPATITIS C

REACTIONS (6)
  - Hepatotoxicity [Unknown]
  - Skin reaction [Unknown]
  - Irritability [Unknown]
  - Anaemia [Unknown]
  - Neutropenia [Unknown]
  - Adverse event [Unknown]
